FAERS Safety Report 5857956-X (Version None)
Quarter: 2008Q3

REPORT INFORMATION
  Report Type: 
  Country: None (occurrence: None)
  Receive Date: 20080825
  Receipt Date: 20080825
  Transmission Date: 20090109
  Serious: Yes (Life-Threatening, Hospitalization, Other)
  Sender: FDA-Public Use
  Company Number: None

PATIENT
  Age: 29 Year
  Sex: Female

DRUGS (2)
  1. PITOCIN [Suspect]
     Indication: CAESAREAN SECTION
     Dosage: IV
     Route: 042
     Dates: start: 19961002, end: 19961002
  2. PITOCIN [Suspect]
     Indication: CAESAREAN SECTION
     Dosage: IV
     Route: 042
     Dates: start: 19990425, end: 19990425

REACTIONS (2)
  - ANAPHYLACTIC SHOCK [None]
  - CARDIO-RESPIRATORY ARREST [None]
